FAERS Safety Report 4273730-2 (Version None)
Quarter: 2004Q1

REPORT INFORMATION
  Report Type: 
  Country: None (occurrence: None)
  Receive Date: 20040116
  Receipt Date: 20040116
  Transmission Date: 20041129
  Serious: Yes (Life-Threatening, Hospitalization, Other)
  Sender: FDA-Public Use
  Company Number: None

PATIENT
  Age: 71 Year
  Sex: Male
  Weight: 70.6 kg

DRUGS (9)
  1. COUMADIN [Suspect]
     Indication: ATRIAL FIBRILLATION
     Dosage: 2.5 MG MO-WED-FRI
  2. ASPIRIN [Concomitant]
  3. LASIX [Concomitant]
  4. DIGOXIN [Concomitant]
  5. METOPROLOL [Concomitant]
  6. VIT B12 [Concomitant]
  7. HYDRALAZINE HCL [Concomitant]
  8. MDUR [Concomitant]
  9. M.V.I. [Concomitant]

REACTIONS (3)
  - EPISTAXIS [None]
  - HYPOVOLAEMIA [None]
  - PHARYNGEAL HAEMORRHAGE [None]
